FAERS Safety Report 9126872 (Version 2)
Quarter: 2016Q4

REPORT INFORMATION
  Report Type: Spontaneous
  Country: ES (occurrence: ES)
  Receive Date: 20130228
  Receipt Date: 20161128
  Transmission Date: 20170207
  Serious: Yes (Life-Threatening, Hospitalization, Other)
  Sender: FDA-Public Use
  Company Number: ES-PFIZER INC-2013070293

PATIENT
  Age: 57 Year
  Sex: Female

DRUGS (8)
  1. ARTILOG [Suspect]
     Active Substance: CELECOXIB
     Indication: RHEUMATOID ARTHRITIS
     Dosage: 400 MG, 2X/DAY
     Route: 048
     Dates: start: 20120716, end: 20120917
  2. RITUXIMAB [Suspect]
     Active Substance: RITUXIMAB
     Indication: RHEUMATOID ARTHRITIS
     Dosage: 2 G, UNK
     Route: 048
     Dates: start: 20120719, end: 20120802
  3. MYFORTIC [Suspect]
     Active Substance: MYCOPHENOLATE SODIUM
     Indication: SCLERODERMA
  4. COLECALCIFEROL W/ROSUVASTATIN CALCIUM [Suspect]
     Active Substance: CHOLECALCIFEROL\ROSUVASTATIN CALCIUM
     Dosage: 2.5 G, UNK
     Route: 048
     Dates: start: 201207, end: 20120917
  5. PANTOPRAZOLE [Suspect]
     Active Substance: PANTOPRAZOLE SODIUM
     Indication: PROPHYLAXIS
     Dosage: 40 MG, QD
     Route: 048
     Dates: start: 20120718, end: 20120917
  6. MYFORTIC [Suspect]
     Active Substance: MYCOPHENOLATE SODIUM
     Indication: RHEUMATOID ARTHRITIS
     Dosage: 1440 MG, 4X/DAY
     Route: 048
     Dates: start: 20120718, end: 20120917
  7. PREDNISONE. [Concomitant]
     Active Substance: PREDNISONE
     Indication: RHEUMATOID ARTHRITIS
     Dosage: 10 MG, UNK
     Route: 048
     Dates: start: 201201
  8. ARTILOG [Suspect]
     Active Substance: CELECOXIB
     Indication: SCLERODERMA

REACTIONS (3)
  - Disease recurrence [Not Recovered/Not Resolved]
  - Agranulocytosis [Recovered/Resolved]
  - Scleroderma [Not Recovered/Not Resolved]

NARRATIVE: CASE EVENT DATE: 20120914
